FAERS Safety Report 10100532 (Version 3)
Quarter: 2014Q3

REPORT INFORMATION
  Report Type: Report from Study
  Country: US (occurrence: US)
  Receive Date: 20140423
  Receipt Date: 20140811
  Transmission Date: 20150326
  Serious: Yes (Hospitalization)
  Sender: FDA-Public Use
  Company Number: US-GLAXOSMITHKLINE-A1070365A

PATIENT
  Age: 10 Year
  Sex: Female
  Weight: 43.7 kg

DRUGS (3)
  1. TOPOTECAN HYDROCHLORIDE. [Suspect]
     Active Substance: TOPOTECAN HYDROCHLORIDE
     Indication: EWING^S SARCOMA
     Dosage: .75MGM2 CYCLIC
     Dates: start: 20131122, end: 20140117
  2. CYCLOPHOSPHAMIDE. [Suspect]
     Active Substance: CYCLOPHOSPHAMIDE
     Indication: EWING^S SARCOMA
     Dosage: 250MGM2 CYCLIC
     Dates: start: 20131122, end: 20140117
  3. CRIZOTINIB [Suspect]
     Active Substance: CRIZOTINIB
     Indication: EWING^S SARCOMA
     Dosage: 215MGM2 CYCLIC
     Dates: start: 20131122, end: 20140117

REACTIONS (2)
  - Abdominal pain [Unknown]
  - Lung infection [Recovered/Resolved]

NARRATIVE: CASE EVENT DATE: 20140117
